FAERS Safety Report 4309709-1 (Version None)
Quarter: 2004Q1

REPORT INFORMATION
  Report Type: 
  Country: None (occurrence: None)
  Receive Date: 20040301
  Receipt Date: 20040217
  Transmission Date: 20041129
  Serious: Yes (Life-Threatening)
  Sender: FDA-Public Use
  Company Number: 200410095BVD

PATIENT
  Age: 68 Year
  Sex: Male
  Weight: 78 kg

DRUGS (19)
  1. AVELOX [Suspect]
     Indication: BRONCHITIS
     Dosage: 400 MG, TOTAL DAILY; ORAL (SEE IMAGE)
     Route: 048
     Dates: start: 20011201
  2. AVELOX [Suspect]
     Indication: CHRONIC OBSTRUCTIVE AIRWAYS DISEASE
     Dosage: 400 MG, TOTAL DAILY; ORAL (SEE IMAGE)
     Route: 048
     Dates: start: 20011201
  3. AVELOX [Suspect]
     Indication: BRONCHITIS
     Dosage: 400 MG, TOTAL DAILY; ORAL (SEE IMAGE)
     Route: 048
     Dates: start: 20030301
  4. AVELOX [Suspect]
     Indication: CHRONIC OBSTRUCTIVE AIRWAYS DISEASE
     Dosage: 400 MG, TOTAL DAILY; ORAL (SEE IMAGE)
     Route: 048
     Dates: start: 20030301
  5. AVELOX [Suspect]
     Indication: BRONCHITIS
     Dosage: 400 MG, TOTAL DAILY; ORAL (SEE IMAGE)
     Route: 048
     Dates: start: 20030501
  6. AVELOX [Suspect]
     Indication: CHRONIC OBSTRUCTIVE AIRWAYS DISEASE
     Dosage: 400 MG, TOTAL DAILY; ORAL (SEE IMAGE)
     Route: 048
     Dates: start: 20030501
  7. AVELOX [Suspect]
     Indication: BRONCHITIS
     Dosage: 400 MG, TOTAL DAILY; ORAL (SEE IMAGE)
     Route: 048
     Dates: start: 20040127
  8. AVELOX [Suspect]
     Indication: CHRONIC OBSTRUCTIVE AIRWAYS DISEASE
     Dosage: 400 MG, TOTAL DAILY; ORAL (SEE IMAGE)
     Route: 048
     Dates: start: 20040127
  9. AZIMILID OR PLACEBO (UNCODEABLE ^INVESTIGATIONAL DRUG^) [Suspect]
     Indication: VENTRICULAR ARRHYTHMIA
     Dosage: 75 OR 125 MG, NI, UNK
     Route: 065
  10. AZIMILID (UNCODEABLE ^UNCLASSIFIABLE^) [Suspect]
     Indication: VENTRICULAR ARRHYTHMIA
     Dosage: 125 MG, TOTAL DAILY; UNK
     Route: 065
     Dates: start: 20030611, end: 20030630
  11. SORTIS [Concomitant]
  12. ACERCOMP [Concomitant]
  13. TOREM [Concomitant]
  14. DILATREND [Concomitant]
  15. MARCUMAR [Concomitant]
  16. DELIX [Concomitant]
  17. TRIAMTEREN [Concomitant]
  18. ALLOPURINOL [Concomitant]
  19. MAGNETRANS [Concomitant]

REACTIONS (3)
  - ELECTROCARDIOGRAM QT PROLONGED [None]
  - TORSADE DE POINTES [None]
  - VENTRICULAR FIBRILLATION [None]
